FAERS Safety Report 17195202 (Version 1)
Quarter: 2019Q4

REPORT INFORMATION
  Report Type: Spontaneous
  Country: US (occurrence: US)
  Receive Date: 20191202
  Receipt Date: 20191202
  Transmission Date: 20200122
  Serious: Yes (Hospitalization)
  Sender: FDA-Public Use
  Company Number: None

PATIENT
  Age: 60 Year
  Sex: Female

DRUGS (17)
  1. SILDENAFIL. [Concomitant]
     Active Substance: SILDENAFIL
  2. PREDNISONE. [Concomitant]
     Active Substance: PREDNISONE
  3. CELLCEPT [Concomitant]
     Active Substance: MYCOPHENOLATE MOFETIL\MYCOPHENOLATE MOFETIL HYDROCHLORIDE
  4. ALBUTEROL INHL NEB SOLN [Concomitant]
     Active Substance: ALBUTEROL
  5. CAPTOPRIL. [Concomitant]
     Active Substance: CAPTOPRIL
  6. CAPTOPRIL. [Concomitant]
     Active Substance: CAPTOPRIL
  7. OPSUMIT [Suspect]
     Active Substance: MACITENTAN
     Indication: PULMONARY HYPERTENSION
     Route: 048
     Dates: start: 201805
  8. ALBUTEROL HFA [Concomitant]
     Active Substance: ALBUTEROL SULFATE
  9. MAGNESIUM OXIDE. [Concomitant]
     Active Substance: MAGNESIUM OXIDE
  10. FLONASE [Concomitant]
     Active Substance: FLUTICASONE PROPIONATE
  11. ATOVENT INHL SOLON [Concomitant]
  12. POTASSIUM CHLORIDE. [Concomitant]
     Active Substance: POTASSIUM CHLORIDE
  13. ZOFRAN [Suspect]
     Active Substance: ONDANSETRON HYDROCHLORIDE
  14. VITAMIN B [Concomitant]
     Active Substance: VITAMIN B
  15. OMEPRAZOLE. [Suspect]
     Active Substance: OMEPRAZOLE
  16. TORSEMIDE. [Concomitant]
     Active Substance: TORSEMIDE
  17. LASIX [Concomitant]
     Active Substance: FUROSEMIDE

REACTIONS (4)
  - Hypoxia [None]
  - Pulmonary oedema [None]
  - Pleural effusion [None]
  - Cardiac failure congestive [None]

NARRATIVE: CASE EVENT DATE: 20191106
